FAERS Safety Report 11759762 (Version 1)
Quarter: 2015Q4

REPORT INFORMATION
  Report Type: Spontaneous
  Country: US (occurrence: None)
  Receive Date: 20151119
  Receipt Date: 20151119
  Transmission Date: 20160304
  Serious: Yes (Other)
  Sender: FDA-Public Use
  Company Number: None

PATIENT
  Age: 72 Year
  Sex: Female
  Weight: 74.84 kg

DRUGS (8)
  1. STANDARD ACT CHEMOTHERAPY [Concomitant]
  2. BENADRYL [Concomitant]
     Active Substance: DIPHENHYDRAMINE HYDROCHLORIDE
  3. MELATONIN [Concomitant]
     Active Substance: MELATONIN
  4. TURKEY TAIL MUSHROOMS [Concomitant]
  5. IRON SUPPLEMENT [Concomitant]
     Active Substance: IRON
  6. ZINC [Concomitant]
     Active Substance: ZINC\ZINC CHLORIDE
  7. PRILOSEC [Suspect]
     Active Substance: OMEPRAZOLE MAGNESIUM
     Dosage: 1
     Route: 048
     Dates: start: 20090930, end: 20140430
  8. VITAMIN D3 [Concomitant]
     Active Substance: CHOLECALCIFEROL

REACTIONS (5)
  - Nervousness [None]
  - Magnesium deficiency [None]
  - Restless legs syndrome [None]
  - Rebound effect [None]
  - Breast cancer stage III [None]

NARRATIVE: CASE EVENT DATE: 20151015
